FAERS Safety Report 9275884 (Version 1)
Quarter: 2013Q2

REPORT INFORMATION
  Report Type: Spontaneous
  Country: PH (occurrence: PH)
  Receive Date: 20130507
  Receipt Date: 20130507
  Transmission Date: 20140414
  Serious: Yes (Death)
  Sender: FDA-Public Use
  Company Number: PH-MERCK-1305PHL001585

PATIENT
  Age: 77 Year
  Sex: Male

DRUGS (1)
  1. JANUMET [Suspect]
     Dosage: 1 TABLET, TWICE A DAY
     Route: 048

REACTIONS (1)
  - Pneumonia [Fatal]
